FAERS Safety Report 10406080 (Version 3)
Quarter: 2015Q2

REPORT INFORMATION
  Report Type: Spontaneous
  Country: US (occurrence: US)
  Receive Date: 20140825
  Receipt Date: 20150428
  Transmission Date: 20150821
  Serious: Yes (Death, Hospitalization, Disabling, Other)
  Sender: FDA-Public Use
  Company Number: US-009507513-1408USA013457

PATIENT
  Sex: Female
  Weight: 61.22 kg

DRUGS (3)
  1. JANUVIA [Suspect]
     Active Substance: SITAGLIPTIN PHOSPHATE
     Indication: TYPE 2 DIABETES MELLITUS
     Dosage: 100 MG, QD
     Route: 048
     Dates: start: 20061114, end: 20100307
  2. BYETTA [Suspect]
     Active Substance: EXENATIDE
     Indication: TYPE 2 DIABETES MELLITUS
     Dosage: 100 MG, UNK
     Dates: start: 201007, end: 201012
  3. BYDUREON [Suspect]
     Active Substance: EXENATIDE
     Indication: TYPE 2 DIABETES MELLITUS
     Dosage: UNK
     Dates: start: 201107

REACTIONS (48)
  - Portal vein thrombosis [Unknown]
  - Anaemia of chronic disease [Not Recovered/Not Resolved]
  - Hypoglycaemia [Unknown]
  - Pneumobilia [Unknown]
  - Klebsiella sepsis [Unknown]
  - Meningioma [Unknown]
  - Myomectomy [Unknown]
  - Hepatic steatosis [Unknown]
  - Hypokalaemia [Unknown]
  - Metastases to stomach [Unknown]
  - Asthenia [Unknown]
  - Visual impairment [Recovering/Resolving]
  - Constipation [Unknown]
  - Metastases to lung [Unknown]
  - Campylobacter infection [Unknown]
  - Leukopenia [Unknown]
  - Hypomagnesaemia [Unknown]
  - Hypoalbuminaemia [Unknown]
  - Renal cyst [Unknown]
  - Pancreatic carcinoma metastatic [Fatal]
  - Cardiac arrest [Fatal]
  - Haematemesis [Fatal]
  - Haemangioma of liver [Unknown]
  - Atelectasis [Unknown]
  - Oedema peripheral [Unknown]
  - Leukocytosis [Unknown]
  - Radiotherapy [Unknown]
  - Metastases to liver [Fatal]
  - Gastritis haemorrhagic [Unknown]
  - Herpes zoster [Unknown]
  - Dizziness [Unknown]
  - Tonsillectomy [Unknown]
  - Haemorrhoidal haemorrhage [Unknown]
  - Vomiting [Unknown]
  - Septic shock [Unknown]
  - Haemorrhagic anaemia [Unknown]
  - International normalised ratio increased [Unknown]
  - Hypertension [Unknown]
  - Cholelithiasis [Unknown]
  - Wisdom teeth removal [Unknown]
  - Respiratory failure [Fatal]
  - Renal failure [Unknown]
  - Hyperlipidaemia [Unknown]
  - Diabetes mellitus inadequate control [Unknown]
  - Blood glucose increased [Unknown]
  - Bile duct stent insertion [Unknown]
  - Generalised oedema [Unknown]
  - Pleural effusion [Unknown]

NARRATIVE: CASE EVENT DATE: 2006
